FAERS Safety Report 26089633 (Version 2)
Quarter: 2025Q4

REPORT INFORMATION
  Report Type: Spontaneous
  Country: CN (occurrence: CN)
  Receive Date: 20251125
  Receipt Date: 20251125
  Transmission Date: 20260118
  Serious: Yes (Life-Threatening)
  Sender: JIANGSU HENGRUI
  Company Number: CN-JIANGSU HENGRUI PHARMACEUTICALS CO., LTD.-H2025241808

PATIENT
  Age: 57 Year
  Weight: 58 kg

DRUGS (3)
  1. BUPIVACAINE [Suspect]
     Active Substance: BUPIVACAINE
     Indication: Nerve block
     Dosage: 266 MG
  2. DEXKETOPROFEN TROMETAMOL [Suspect]
     Active Substance: DEXKETOPROFEN TROMETAMOL
     Indication: Analgesic therapy
     Dosage: 50 MG
  3. CIPEPOFOL [Suspect]
     Active Substance: CIPEPOFOL
     Indication: Induction of anaesthesia
     Dosage: 0.4 MG/KG

REACTIONS (1)
  - Anaphylactic shock [Recovering/Resolving]
